FAERS Safety Report 4879862-X (Version None)
Quarter: 2006Q1

REPORT INFORMATION
  Report Type: 
  Country: None (occurrence: None)
  Receive Date: 20060113
  Receipt Date: 20030512
  Transmission Date: 20060701
  Serious: Yes (Death, Hospitalization)
  Sender: FDA-Public Use
  Company Number: PHBS2003IN04927

PATIENT
  Age: 45 Year
  Sex: Female

DRUGS (1)
  1. CLOFAZIMINE [Suspect]
     Indication: LEPROMATOUS LEPROSY
     Dosage: 300 MG, QD
     Route: 065

REACTIONS (16)
  - ABDOMINAL PAIN [None]
  - DEHYDRATION [None]
  - DIARRHOEA [None]
  - DIZZINESS [None]
  - DRUG TOXICITY [None]
  - HYPOKALAEMIA [None]
  - HYPOTENSION [None]
  - ICHTHYOSIS [None]
  - MEDICATION ERROR [None]
  - METABOLIC ACIDOSIS [None]
  - OEDEMA PERIPHERAL [None]
  - PYREXIA [None]
  - SHOCK [None]
  - SKIN HYPERPIGMENTATION [None]
  - SWELLING FACE [None]
  - VOMITING [None]
